FAERS Safety Report 5978988-7 (Version None)
Quarter: 2008Q4

REPORT INFORMATION
  Report Type: 
  Country: None (occurrence: None)
  Receive Date: 20081204
  Receipt Date: 20080520
  Transmission Date: 20090506
  Serious: No
  Sender: FDA-Public Use
  Company Number: US-ABBOTT-08P-163-0455185-00

PATIENT
  Age: 36 Year
  Sex: Male

DRUGS (1)
  1. TRICOR [Suspect]
     Indication: BLOOD TRIGLYCERIDES INCREASED

REACTIONS (8)
  - ABDOMINAL DISTENSION [None]
  - FATIGUE [None]
  - HEADACHE [None]
  - JOINT RANGE OF MOTION DECREASED [None]
  - MUSCULOSKELETAL PAIN [None]
  - PHOTOSENSITIVITY REACTION [None]
  - SLEEP DISORDER [None]
  - WEIGHT INCREASED [None]
